FAERS Safety Report 5642911-5 (Version None)
Quarter: 2008Q1

REPORT INFORMATION
  Report Type: 
  Country: None (occurrence: None)
  Receive Date: 20080228
  Receipt Date: 20080220
  Transmission Date: 20080703
  Serious: Yes (Life-Threatening)
  Sender: FDA-Public Use
  Company Number: US-ROCHE-548677

PATIENT
  Age: 32 Year
  Sex: Female

DRUGS (19)
  1. XELODA [Suspect]
     Indication: DRUG USE FOR UNKNOWN INDICATION
     Route: 065
  2. TYKERB [Suspect]
     Indication: BREAST CANCER
     Route: 048
     Dates: start: 20071209
  3. TYKERB [Suspect]
     Dosage: TOTAL DURATION REPORTED AS 8 WEEKS.
     Route: 048
     Dates: end: 20080130
  4. ZOCOR [Concomitant]
  5. LEVOXYL [Concomitant]
  6. CATAPRES [Concomitant]
  7. PHENERGAN HCL [Concomitant]
  8. BENADRYL [Concomitant]
  9. PRILOSEC [Concomitant]
  10. ASCORBIC ACID [Concomitant]
  11. OXYCODONE HCL [Concomitant]
  12. NEURONTIN [Concomitant]
  13. ELAVIL [Concomitant]
  14. POTASSIUM SALTS [Concomitant]
  15. LUPRON [Concomitant]
  16. REGLAN [Concomitant]
  17. COUMADIN [Concomitant]
  18. METHADONE HYDROCHLORIDE [Concomitant]
  19. AROMASIN [Concomitant]

REACTIONS (9)
  - CONTUSION [None]
  - DIARRHOEA [None]
  - DYSPNOEA [None]
  - EPISTAXIS [None]
  - FATIGUE [None]
  - INTERNATIONAL NORMALISED RATIO INCREASED [None]
  - NAUSEA [None]
  - SEPSIS [None]
  - VOMITING [None]
